FAERS Safety Report 6105548-X (Version None)
Quarter: 2009Q1

REPORT INFORMATION
  Report Type: 
  Country: None (occurrence: None)
  Receive Date: 20090306
  Receipt Date: 20090227
  Transmission Date: 20090719
  Serious: Yes (Other)
  Sender: FDA-Public Use
  Company Number: B0563430A

PATIENT
  Age: 63 Year
  Sex: Male
  Weight: 78 kg

DRUGS (1)
  1. REQUIP [Suspect]
     Indication: PARKINSON'S DISEASE
     Dosage: 2MG FOUR TIMES PER DAY
     Route: 048
     Dates: start: 20010101

REACTIONS (2)
  - AGGRESSION [None]
  - COMPULSIVE SEXUAL BEHAVIOUR [None]
